FAERS Safety Report 25399409 (Version 1)
Quarter: 2025Q2

REPORT INFORMATION
  Report Type: Spontaneous
  Country: SA (occurrence: SA)
  Receive Date: 20250605
  Receipt Date: 20250605
  Transmission Date: 20250716
  Serious: Yes (Other)
  Sender: CHIESI
  Company Number: SA-CHIESI-2025CHF03693

PATIENT
  Age: 22 Year

DRUGS (1)
  1. MYALEPT [Suspect]
     Active Substance: METRELEPTIN
     Indication: Lipodystrophy acquired
     Route: 058

REACTIONS (1)
  - Type 1 diabetes mellitus [Unknown]
